FAERS Safety Report 4941120-2 (Version None)
Quarter: 2006Q1

REPORT INFORMATION
  Report Type: 
  Country: None (occurrence: None)
  Receive Date: 20060313
  Receipt Date: 20060306
  Transmission Date: 20060701
  Serious: Yes (Hospitalization)
  Sender: FDA-Public Use
  Company Number: 2006015791

PATIENT
  Age: 36 Year
  Sex: Male
  Weight: 69.5 kg

DRUGS (22)
  1. ZIAGEN [Suspect]
     Indication: HIV INFECTION
     Dosage: 300MG TWICE PER DAY
     Route: 048
     Dates: start: 20050606, end: 20051129
  2. EPIVIR [Concomitant]
     Indication: HIV INFECTION
     Dosage: 150MG TWICE PER DAY
     Route: 048
     Dates: start: 20050609, end: 20051129
  3. KALETRA [Concomitant]
     Indication: HIV INFECTION
     Dosage: 400MG PER DAY
     Route: 048
     Dates: start: 20050609, end: 20051129
  4. BLINDED TRIAL MEDICATION [Concomitant]
     Indication: HIV INFECTION
     Dates: start: 20050609, end: 20051129
  5. VITAMIN B-12 [Concomitant]
     Dates: start: 20050523
  6. TESTOSTERONE [Concomitant]
     Dates: start: 20051120
  7. LOMOTIL [Concomitant]
  8. BOOST [Concomitant]
     Dates: start: 20030921
  9. MEGACE [Concomitant]
     Dates: start: 20050323
  10. ATIVAN [Concomitant]
     Dates: start: 20040127
  11. HYDROCORTISONE [Concomitant]
     Dates: start: 20050523
  12. VITAMIN B COMPLEX CAP [Concomitant]
     Dates: start: 20050523
  13. LEVOCARNITINE [Concomitant]
     Dates: start: 20050523
  14. NIACIN [Concomitant]
     Dates: start: 20050523
  15. DIFLUCAN [Concomitant]
     Dates: start: 20050823
  16. NIZORAL [Concomitant]
     Dates: start: 20050705
  17. MARINOL [Concomitant]
     Dates: start: 20050705
  18. TRIAMCINOLONE [Concomitant]
     Dates: start: 20050705
  19. ZOVIRAX [Concomitant]
     Dosage: 800MG PER DAY
     Dates: start: 20050715
  20. PREVACID [Concomitant]
     Dates: start: 20051205
  21. AMBIEN [Concomitant]
     Dates: start: 20051124
  22. BACTRIM [Concomitant]

REACTIONS (6)
  - ABDOMINAL PAIN [None]
  - FOOD INTOLERANCE [None]
  - HEPATITIS [None]
  - NAUSEA [None]
  - PANCREATITIS [None]
  - VOMITING [None]
